FAERS Safety Report 15604584 (Version 2)
Quarter: 2018Q4

REPORT INFORMATION
  Report Type: Spontaneous
  Country: US (occurrence: US)
  Receive Date: 20181110
  Receipt Date: 20181205
  Transmission Date: 20190205
  Serious: No
  Sender: FDA-Public Use
  Company Number: PHHY2018US149484

PATIENT
  Sex: Female

DRUGS (1)
  1. SYSTANE NIGHTTIME [Suspect]
     Active Substance: MINERAL OIL\PETROLATUM
     Dosage: UNK
     Route: 047
     Dates: start: 20181008

REACTIONS (4)
  - Rhinorrhoea [Recovered/Resolved]
  - Product physical consistency issue [Unknown]
  - Lacrimation increased [Recovered/Resolved]
  - Vision blurred [Recovered/Resolved]

NARRATIVE: CASE EVENT DATE: 20181008
